FAERS Safety Report 11708931 (Version 1)
Quarter: 2015Q4

REPORT INFORMATION
  Report Type: Spontaneous
  Country: US (occurrence: US)
  Receive Date: 20151104
  Receipt Date: 20151104
  Transmission Date: 20160304
  Serious: No
  Sender: FDA-Public Use
  Company Number: US-ELI_LILLY_AND_COMPANY-US201103000921

PATIENT
  Age: 75 Year
  Sex: Female

DRUGS (7)
  1. FORTEO [Suspect]
     Active Substance: TERIPARATIDE
     Dosage: 20 UG, QD
     Route: 058
  2. FORTEO [Suspect]
     Active Substance: TERIPARATIDE
     Dosage: 20 UG, QD
     Route: 058
  3. TOPROL XL [Concomitant]
     Active Substance: METOPROLOL SUCCINATE
     Route: 065
  4. FORTEO [Suspect]
     Active Substance: TERIPARATIDE
     Indication: OSTEOPOROSIS
     Dosage: 20 UG, QD
     Route: 058
     Dates: start: 201102, end: 201102
  5. FORTEO [Suspect]
     Active Substance: TERIPARATIDE
     Dosage: 20 UG, QD
     Route: 058
  6. TRAMADOL. [Concomitant]
     Active Substance: TRAMADOL
     Route: 065
  7. DOXEPIN [Concomitant]
     Active Substance: DOXEPIN
     Route: 065

REACTIONS (16)
  - Mental impairment [Unknown]
  - Drug dose omission [Unknown]
  - Limb injury [Unknown]
  - Arthralgia [Unknown]
  - Face injury [Unknown]
  - Contusion [Unknown]
  - Rash [Unknown]
  - Arthritis [Unknown]
  - Joint injury [Unknown]
  - Pain [Unknown]
  - Herpes zoster [Not Recovered/Not Resolved]
  - Hand fracture [Recovering/Resolving]
  - Fall [Recovered/Resolved]
  - Peripheral swelling [Unknown]
  - Movement disorder [Unknown]
  - Vertigo [Recovering/Resolving]

NARRATIVE: CASE EVENT DATE: 20110203
